FAERS Safety Report 8502258 (Version 7)
Quarter: 2017Q4

REPORT INFORMATION
  Report Type: Spontaneous
  Country: US (occurrence: US)
  Receive Date: 20120410
  Receipt Date: 20171212
  Transmission Date: 20180321
  Serious: Yes (Hospitalization, Other)
  Sender: FDA-Public Use
  Company Number: US-009507513-1204USA01001

PATIENT
  Sex: Female
  Weight: 86.62 kg

DRUGS (10)
  1. CALCIUM (UNSPECIFIED) [Concomitant]
     Active Substance: CALCIUM
     Indication: PRODUCT USED FOR UNKNOWN INDICATION
     Dosage: 1000 MG, QD
     Route: 065
     Dates: start: 2007
  2. FOSAMAX [Suspect]
     Active Substance: ALENDRONATE SODIUM
     Indication: COMPRESSION FRACTURE
  3. ALENDRONATE SODIUM. [Suspect]
     Active Substance: ALENDRONATE SODIUM
     Indication: OSTEOPOROSIS
     Dosage: 70 MG, QW
     Route: 048
     Dates: start: 20050419, end: 201003
  4. FOSAMAX [Suspect]
     Active Substance: ALENDRONATE SODIUM
     Indication: OSTEOPOROSIS
     Dosage: QD
     Route: 048
     Dates: start: 20021204
  5. CALCIUM (UNSPECIFIED) (+) VITAMIN D (UNSPECIFIED) [Concomitant]
     Active Substance: CALCIUM CARBONATE\VITAMIN D
     Indication: COMPRESSION FRACTURE
     Dosage: 1000 MG QD
     Route: 065
     Dates: start: 20021120
  6. CHOLECALCIFEROL [Concomitant]
     Active Substance: CHOLECALCIFEROL
     Indication: OSTEOPOROSIS
     Dosage: 1000 IU, DAILY
     Route: 048
  7. CALCIUM CITRATE [Concomitant]
     Active Substance: CALCIUM CITRATE
     Indication: OSTEOPOROSIS
     Dosage: UNK, TID
     Route: 065
  8. CALCIUM CARBONATE. [Concomitant]
     Active Substance: CALCIUM CARBONATE
     Indication: OSTEOPOROSIS
     Dosage: 1500 MG, BID
     Route: 048
  9. FOSAMAX [Suspect]
     Active Substance: ALENDRONATE SODIUM
     Indication: OSTEOPENIA
     Dosage: 70 MG, QW
     Route: 048
     Dates: start: 20000101, end: 20100402
  10. FOSAMAX PLUS D [Suspect]
     Active Substance: ALENDRONATE SODIUM\CHOLECALCIFEROL
     Indication: OSTEOPOROSIS
     Dosage: UNK UNK, QW
     Route: 048
     Dates: start: 20070618

REACTIONS (36)
  - Open reduction of fracture [Unknown]
  - Ankle fracture [Unknown]
  - Spinal compression fracture [Unknown]
  - Hepatic enzyme increased [Unknown]
  - Lumbar radiculopathy [Unknown]
  - Plantar fasciitis [Unknown]
  - Acrochordon [Unknown]
  - Bursitis [Recovered/Resolved]
  - Humerus fracture [Unknown]
  - Fracture [Unknown]
  - Low turnover osteopathy [Unknown]
  - Pathological fracture [Unknown]
  - Anaemia [Unknown]
  - Radius fracture [Unknown]
  - Fall [Unknown]
  - Malnutrition [Unknown]
  - Iron deficiency anaemia [Unknown]
  - Open reduction of fracture [Unknown]
  - Compression fracture [Unknown]
  - Fall [Unknown]
  - Stress fracture [Recovering/Resolving]
  - Sciatica [Unknown]
  - Radius fracture [Unknown]
  - Cyst removal [Unknown]
  - Seborrhoeic keratosis [Unknown]
  - Femur fracture [Unknown]
  - Intervertebral disc protrusion [Unknown]
  - Back pain [Unknown]
  - Injury [Unknown]
  - Restless legs syndrome [Unknown]
  - Fall [Unknown]
  - Fibula fracture [Unknown]
  - Fall [Unknown]
  - Scoliosis [Unknown]
  - Intervertebral disc disorder [Unknown]
  - Synovial cyst [Unknown]

NARRATIVE: CASE EVENT DATE: 2000
